FAERS Safety Report 25134863 (Version 1)
Quarter: 2025Q1

REPORT INFORMATION
  Report Type: Spontaneous
  Country: JP (occurrence: JP)
  Receive Date: 20250328
  Receipt Date: 20250328
  Transmission Date: 20250409
  Serious: Yes (Other)
  Sender: REGENERON
  Company Number: JP-REGENERON PHARMACEUTICALS, INC.-2025-054244

PATIENT
  Age: 7 Decade
  Sex: Female

DRUGS (2)
  1. LIBTAYO [Suspect]
     Active Substance: CEMIPLIMAB-RWLC
     Indication: Cervix carcinoma recurrent
     Dates: start: 20240704
  2. LIBTAYO [Suspect]
     Active Substance: CEMIPLIMAB-RWLC
     Dates: start: 20241203

REACTIONS (8)
  - Carcinoembryonic antigen increased [Unknown]
  - Glycosylated haemoglobin increased [Unknown]
  - Blood glucose increased [Unknown]
  - Blood creatine phosphokinase increased [Unknown]
  - Carbohydrate antigen 125 increased [Unknown]
  - Squamous cell carcinoma antigen increased [Unknown]
  - Blood bilirubin decreased [Unknown]
  - Carboxyhaemoglobin decreased [Unknown]

NARRATIVE: CASE EVENT DATE: 20241202
